FAERS Safety Report 25860378 (Version 1)
Quarter: 2025Q3

REPORT INFORMATION
  Report Type: Report from Study
  Country: CA (occurrence: CA)
  Receive Date: 20250929
  Receipt Date: 20250929
  Transmission Date: 20251020
  Serious: Yes (Hospitalization)
  Sender: JAZZ
  Company Number: CA-JAZZ PHARMACEUTICALS-2025-CA-022638

PATIENT
  Sex: Male

DRUGS (2)
  1. EPIDIOLEX [Suspect]
     Active Substance: CANNABIDIOL
     Indication: Product used for unknown indication
  2. EPIDIOLEX [Suspect]
     Active Substance: CANNABIDIOL

REACTIONS (1)
  - Hospitalisation [Unknown]
